FAERS Safety Report 20378758 (Version 1)
Quarter: 2022Q1

REPORT INFORMATION
  Report Type: Spontaneous
  Country: US (occurrence: None)
  Receive Date: 20220125
  Receipt Date: 20220125
  Transmission Date: 20220423
  Serious: Yes (Death)
  Sender: FDA-Public Use
  Company Number: None

PATIENT
  Age: 74 Year
  Sex: Male
  Weight: 104.4 kg

DRUGS (3)
  1. CEMIPLIMAB [Suspect]
     Active Substance: CEMIPLIMAB
     Indication: Product used for unknown indication
     Dates: start: 20211126, end: 20220105
  2. PREDNISONE [Suspect]
     Active Substance: PREDNISONE
     Dates: start: 20211126, end: 20220105
  3. EVEROLIMUS [Suspect]
     Active Substance: EVEROLIMUS

REACTIONS (1)
  - Disease progression [None]

NARRATIVE: CASE EVENT DATE: 20220121
